FAERS Safety Report 17660861 (Version 1)
Quarter: 2020Q2

REPORT INFORMATION
  Report Type: Spontaneous
  Country: US (occurrence: US)
  Receive Date: 20200411
  Receipt Date: 20200411
  Transmission Date: 20200713
  Serious: Yes (Other)
  Sender: FDA-Public Use
  Company Number: None

PATIENT
  Age: 66 Year
  Sex: Female
  Weight: 112.5 kg

DRUGS (15)
  1. FISH OIL [Concomitant]
     Active Substance: FISH OIL
  2. KLONOPIN [Concomitant]
     Active Substance: CLONAZEPAM
  3. PROBIOTICS [Concomitant]
     Active Substance: PROBIOTICS NOS
  4. PROTONIX [Concomitant]
     Active Substance: PANTOPRAZOLE SODIUM
  5. MILK THISTLE [Concomitant]
     Active Substance: DIETARY SUPPLEMENT\HERBALS\MILK THISTLE
  6. SPIRIVA RESPIMAT [Suspect]
     Active Substance: TIOTROPIUM BROMIDE
     Indication: CHRONIC OBSTRUCTIVE PULMONARY DISEASE
     Dosage: ?          QUANTITY:1 PUFF(S);?
     Route: 055
     Dates: start: 20200328, end: 20200407
  7. TINAZIDINE [Concomitant]
     Active Substance: TIZANIDINE
  8. MULTIVITAMIN [Concomitant]
     Active Substance: VITAMINS
  9. VITAMINS C [Concomitant]
  10. LISINIPRIL HCI [Concomitant]
  11. DULOXETINE. [Concomitant]
     Active Substance: DULOXETINE
  12. VENTOLIN [Concomitant]
     Active Substance: ALBUTEROL SULFATE
  13. VITAMIN D [Concomitant]
     Active Substance: VITAMIN D NOS
  14. ENZYMES [Concomitant]
  15. SYMBICORT [Concomitant]
     Active Substance: BUDESONIDE\FORMOTEROL FUMARATE DIHYDRATE

REACTIONS (3)
  - Rash [None]
  - Dyspnoea [None]
  - Headache [None]

NARRATIVE: CASE EVENT DATE: 20200328
